FAERS Safety Report 6768156-3 (Version None)
Quarter: 2010Q2

REPORT INFORMATION
  Report Type: 
  Country: None (occurrence: None)
  Receive Date: 20100614
  Receipt Date: 20100603
  Transmission Date: 20101027
  Serious: Yes (Hospitalization)
  Sender: FDA-Public Use
  Company Number: US-JNJFOC-20100602720

PATIENT
  Sex: Female
  Weight: 78.91 kg

DRUGS (7)
  1. LOPERAMIDE HYDROCHLORIDE [Suspect]
     Indication: DIARRHOEA
     Route: 048
  2. UNKNOWN MEDICATION [Suspect]
     Indication: COLON CANCER
     Route: 042
  3. CAMPTOSAR [Suspect]
     Indication: COLON CANCER
     Route: 042
  4. LEUCOVORIN CALCIUM [Suspect]
     Indication: COLON CANCER
     Route: 042
  5. FLUOROURACIL [Suspect]
     Indication: COLON CANCER
     Route: 042
  6. NAPROXEN [Concomitant]
  7. WARFARIN [Concomitant]

REACTIONS (3)
  - DIARRHOEA [None]
  - ILEUS [None]
  - INTESTINAL OBSTRUCTION [None]
